FAERS Safety Report 22261271 (Version 2)
Quarter: 2023Q2

REPORT INFORMATION
  Report Type: Spontaneous
  Country: GR (occurrence: GR)
  Receive Date: 20230427
  Receipt Date: 20230508
  Transmission Date: 20230722
  Serious: Yes (Hospitalization)
  Sender: FDA-Public Use
  Company Number: GR-BoehringerIngelheim-2023-BI-233617

PATIENT
  Age: 71 Year
  Sex: Male
  Weight: 70 kg

DRUGS (3)
  1. PRADAXA [Suspect]
     Active Substance: DABIGATRAN ETEXILATE MESYLATE
     Indication: Product used for unknown indication
     Route: 048
     Dates: end: 20230423
  2. CARVEDILOL [Concomitant]
     Active Substance: CARVEDILOL
  3. LASIX [Concomitant]
     Active Substance: FUROSEMIDE

REACTIONS (4)
  - Ascites [Recovering/Resolving]
  - Abdominal distension [Recovering/Resolving]
  - Haematemesis [Recovering/Resolving]
  - Parotid gland enlargement [Not Recovered/Not Resolved]

NARRATIVE: CASE EVENT DATE: 20230401
